FAERS Safety Report 8847357 (Version 1)
Quarter: 2012Q4

REPORT INFORMATION
  Report Type: 
  Country: US (occurrence: US)
  Receive Date: 20121018
  Receipt Date: 20121018
  Transmission Date: 20130627
  Serious: No
  Sender: FDA-Public Use
  Company Number: US-B.I. PHARMACEUTICALS,INC./RIDGEFIELD-2012-BP-24733BP

PATIENT
  Age: 87 None
  Sex: Female
  Weight: 58 kg

DRUGS (3)
  1. COMBIVENT [Suspect]
     Indication: CHRONIC OBSTRUCTIVE PULMONARY DISEASE
     Dosage: 8 puf
     Route: 055
     Dates: start: 2008
  2. SYMBICORT [Concomitant]
     Indication: CHRONIC OBSTRUCTIVE PULMONARY DISEASE
     Dosage: 2 puf
     Route: 055
     Dates: start: 2008
  3. ENALAPRIL [Concomitant]
     Indication: HYPERTENSION
     Dosage: 5 mg
     Route: 048
     Dates: start: 2005

REACTIONS (2)
  - Vulvovaginal rash [Not Recovered/Not Resolved]
  - Dyspnoea exertional [Not Recovered/Not Resolved]
